FAERS Safety Report 14976899 (Version 1)
Quarter: 2018Q2

REPORT INFORMATION
  Report Type: Spontaneous
  Country: ES (occurrence: ES)
  Receive Date: 20180605
  Receipt Date: 20180605
  Transmission Date: 20180711
  Serious: Yes (Hospitalization, Other)
  Sender: FDA-Public Use
  Company Number: ES-TEVA-2018-ES-902111

PATIENT
  Age: 76 Year
  Sex: Female
  Weight: 59 kg

DRUGS (5)
  1. PERTUZUMAB (8450A) [Interacting]
     Active Substance: PERTUZUMAB
     Indication: OESTROGEN RECEPTOR POSITIVE BREAST CANCER
     Route: 042
     Dates: start: 20171205
  2. TRASTUZUMAB (1168A) [Suspect]
     Active Substance: TRASTUZUMAB
     Indication: OESTROGEN RECEPTOR POSITIVE BREAST CANCER
     Route: 042
     Dates: start: 20171205
  3. IRENOR 4 MG COMPRIMIDOS, 20 COMPRIMIDOS [Concomitant]
     Indication: DEPRESSION
     Dosage: 4 MILLIGRAM DAILY;
     Route: 048
     Dates: start: 20170101, end: 20180117
  4. PACLITAXEL (2698A) [Suspect]
     Active Substance: PACLITAXEL
     Indication: OESTROGEN RECEPTOR POSITIVE BREAST CANCER
     Route: 042
     Dates: start: 20171205
  5. DOBUPAL 37,5 MG COMPRIMIDOS , 60 COMPRIMIDOS [Concomitant]
     Indication: DEPRESSION
     Dosage: 37.5 MILLIGRAM DAILY;
     Route: 048
     Dates: start: 20170101, end: 20180117

REACTIONS (4)
  - Diarrhoea [Recovered/Resolved]
  - Atrial flutter [Recovered/Resolved]
  - Neutropenia [Recovered/Resolved]
  - Drug interaction [Unknown]

NARRATIVE: CASE EVENT DATE: 20180113
